FAERS Safety Report 16270906 (Version 4)
Quarter: 2019Q4

REPORT INFORMATION
  Report Type: Spontaneous
  Country: JP (occurrence: JP)
  Receive Date: 20190503
  Receipt Date: 20191003
  Transmission Date: 20200122
  Serious: Yes (Hospitalization, Other)
  Sender: FDA-Public Use
  Company Number: JP-AMGEN-JPNSP2019068099

PATIENT
  Age: 66 Year
  Sex: Male
  Weight: 60 kg

DRUGS (74)
  1. ROCALTROL [Concomitant]
     Active Substance: CALCITRIOL
     Dosage: 0.5 MICROGRAM, 3 TIMES/WK
     Route: 042
     Dates: start: 20181015, end: 20190121
  2. ALLEGRA [Concomitant]
     Active Substance: FEXOFENADINE HYDROCHLORIDE
     Dosage: 60 MG/DAY, 2 DAY SUPPLY
     Dates: start: 20180314
  3. ALLELOCK [Concomitant]
     Active Substance: OLOPATADINE HYDROCHLORIDE
     Indication: PRURITUS
     Dosage: 2.5 MG, EVERYDAY
     Route: 048
     Dates: start: 20190227
  4. LOXONIN [Concomitant]
     Active Substance: LOXOPROFEN SODIUM
     Dosage: 60 MG, 10 DOSES, AS NEEDED(WITH AT LEAST 6 HOURS OF INTERVALS BETWEEN DOSES)
     Route: 048
     Dates: start: 20190318
  5. LOXONIN [Concomitant]
     Active Substance: LOXOPROFEN SODIUM
     Dosage: 60 MG, 10 DOSES, AS NEEDED(WITH AT LEAST 6 HOURS OF INTERVALS BETWEEN DOSES, UP TO TWICE A DAY)
     Route: 048
     Dates: start: 20190419
  6. NAUZELIN [Concomitant]
     Active Substance: DOMPERIDONE
     Indication: NAUSEA
     Dosage: 10 MG, EVERYDAY
     Route: 048
     Dates: start: 20180110, end: 20180417
  7. CALTAN [Concomitant]
     Active Substance: CALCIUM CARBONATE
     Dosage: 1000 MG, Q8H
     Route: 048
     Dates: start: 20190213
  8. RIONA [Concomitant]
     Active Substance: FERRIC CITRATE ANHYDROUS
     Dosage: 500 MG, Q8H
     Route: 048
     Dates: start: 20180110, end: 20180417
  9. NESP [Concomitant]
     Active Substance: DARBEPOETIN ALFA
     Dosage: 40 MICROGRAM, QWK
     Route: 042
     Dates: start: 20180413
  10. ROCALTROL [Concomitant]
     Active Substance: CALCITRIOL
     Dosage: 1-0.5-1 UG, Q56H
     Route: 042
     Dates: start: 20190123
  11. ATARAX-P [HYDROXYZINE EMBONATE] [Concomitant]
     Indication: RESTLESSNESS
     Dosage: 25 MILLIGRAM, BID
     Route: 048
     Dates: start: 20180110, end: 20180417
  12. BRUFEN [IBUPROFEN] [Concomitant]
     Active Substance: IBUPROFEN
     Indication: OROPHARYNGEAL PAIN
     Dosage: 200 MILLIGRAM, BID
     Route: 048
     Dates: start: 20180110, end: 20180417
  13. MOHRUS L [Concomitant]
     Active Substance: KETOPROFEN
     Dosage: 40 MG/DAY, 10 DAY SUPPLY
     Route: 062
     Dates: start: 20190322
  14. LOXONIN [Concomitant]
     Active Substance: LOXOPROFEN SODIUM
     Dosage: 60 MG, 10 DOSES, AS NEEDED(WITH AT LEAST 6 HOURS OF INTERVALS BETWEEN DOSES)
     Route: 048
     Dates: start: 20190313
  15. LOXONIN [Concomitant]
     Active Substance: LOXOPROFEN SODIUM
     Dosage: 60 MG, 10 DOSES, AS NEEDED(WITH AT LEAST 6 HOURS OF INTERVALS BETWEEN DOSES, UP TO TWICE A DAY)
     Route: 048
     Dates: start: 20190426
  16. FOSRENOL [Concomitant]
     Active Substance: LANTHANUM CARBONATE
     Dosage: 250 MG, Q8H
     Route: 048
     Dates: start: 20180110, end: 20180417
  17. RIONA [Concomitant]
     Active Substance: FERRIC CITRATE ANHYDROUS
     Indication: HYPERPHOSPHATAEMIA
     Dosage: 500 MILLIGRAM, Q8H
     Route: 048
     Dates: start: 20180110, end: 20180417
  18. RIONA [Concomitant]
     Active Substance: FERRIC CITRATE ANHYDROUS
     Dosage: 250 MILLIGRAM, Q8H
     Route: 048
     Dates: start: 20190724
  19. MUCOSTA [Concomitant]
     Active Substance: REBAMIPIDE
     Dosage: 100 MG, 10 DOSES, AS NEEDED (WITH AT LEAST 6 HOURS OF INTERVALS BETWEEN DOSES)
     Route: 048
     Dates: start: 20190318
  20. PARSABIV [Suspect]
     Active Substance: ETELCALCETIDE HYDROCHLORIDE
     Dosage: 2.5 MILLIGRAM, 3 TIMES/WK
     Route: 010
     Dates: start: 20180328, end: 20180416
  21. ROCALTROL [Concomitant]
     Active Substance: CALCITRIOL
     Indication: HYPERPARATHYROIDISM SECONDARY
     Dosage: 0.5 MICROGRAM, 3 TIMES/WK
     Route: 042
     Dates: start: 20171016
  22. BRUFEN [IBUPROFEN] [Concomitant]
     Active Substance: IBUPROFEN
     Dosage: 10 DOSES, AS NEEDED
     Route: 048
     Dates: start: 20190628
  23. BRUFEN [IBUPROFEN] [Concomitant]
     Active Substance: IBUPROFEN
     Dosage: 10 DOSES, AS NEEDED
     Route: 048
     Dates: start: 20190726
  24. CARVEDILOL. [Concomitant]
     Active Substance: CARVEDILOL
     Indication: CARDIAC FAILURE CHRONIC
     Dosage: 2.5 MG, EVERYDAY
     Route: 048
     Dates: start: 20180110, end: 20180417
  25. MUCOSTA [Concomitant]
     Active Substance: REBAMIPIDE
     Indication: ABDOMINAL PAIN UPPER
     Dosage: 100 MG, 10 DOSES, AS NEEDED (WITH AT LEAST 6 HOURS OF INTERVALS BETWEEN DOSES)
     Route: 048
     Dates: start: 20190313
  26. MUCOSTA [Concomitant]
     Active Substance: REBAMIPIDE
     Dosage: 100 MG, 10 DOSES, AS NEEDED (WITH AT LEAST 6 HOURS OF INTERVALS BETWEEN DOSES, UP TO TWICE A DAY)
     Route: 048
     Dates: start: 20190322
  27. MUCOSTA [Concomitant]
     Active Substance: REBAMIPIDE
     Dosage: UNK, 10 DOSES, AS NEEDED
     Dates: start: 20190729
  28. MUCOSTA [Concomitant]
     Active Substance: REBAMIPIDE
     Dosage: 100 MG, Q12H
     Route: 048
     Dates: start: 20180110, end: 20180417
  29. HISHIPHAGEN C [CYSTEINE HYDROCHLORIDE;GLYCINE;GLYCYRRHIZIC ACID] [Concomitant]
     Indication: DERMATITIS ALLERGIC
     Dosage: 40 MILLIGRAM, 3 TIMES/WK
     Route: 042
     Dates: start: 20170802
  30. MOHRUS L [Concomitant]
     Active Substance: KETOPROFEN
     Indication: BACK PAIN
     Dosage: 40 MG/DAY, 17 DAY SUPPLY
     Route: 062
     Dates: start: 20180309
  31. NITROPEN [Concomitant]
     Active Substance: NITROGLYCERIN
     Indication: CHEST PAIN
     Dosage: UNK, 6 DOSES, AS NEEDED, ORALLY
     Route: 060
     Dates: start: 20180326
  32. ALOSENN [ACHILLEA MILLEFOLIUM;RUBIA TINCTORUM ROOT TINCTURE;SENNA ALEX [Concomitant]
     Active Substance: ACHILLEA MILLEFOLIUM\RUBIA TINCTURE\SENNA FRUIT EXTRACT\SENNA LEAF\TARAXACUM OFFICINALE
     Dosage: 1 DF, 5 DAY SUPPLY
     Route: 048
     Dates: start: 20190325
  33. LOXONIN [Concomitant]
     Active Substance: LOXOPROFEN SODIUM
     Dosage: 60 MG, 10 DOSES, AS NEEDED(WITH AT LEAST 6 HOURS OF INTERVALS BETWEEN DOSES, UP TO TWICE A DAY)
     Route: 048
     Dates: start: 20190322
  34. NEXIUM [Concomitant]
     Active Substance: ESOMEPRAZOLE MAGNESIUM
     Indication: GASTRITIS
     Dosage: 20 MG, EVERYDAY
     Route: 048
     Dates: start: 20180110, end: 20180417
  35. FOSRENOL [Concomitant]
     Active Substance: LANTHANUM CARBONATE
     Indication: HYPERPHOSPHATAEMIA
     Dosage: 250 MILLIGRAM, Q8H
     Route: 048
     Dates: start: 20180110, end: 20180417
  36. ALLOID G [Concomitant]
     Active Substance: SODIUM ALGINATE
     Indication: GASTRITIS
     Dosage: UNK, Q8H
     Route: 048
     Dates: start: 20190318
  37. PARSABIV [Suspect]
     Active Substance: ETELCALCETIDE HYDROCHLORIDE
     Indication: HYPERPARATHYROIDISM SECONDARY
     Dosage: 5 MILLIGRAM, 3 TIMES/WK
     Route: 010
     Dates: start: 20180115, end: 20180326
  38. NESP [Concomitant]
     Active Substance: DARBEPOETIN ALFA
     Dosage: 100 MICROGRAM, QWK
     Route: 042
     Dates: start: 20190315, end: 20190424
  39. BRUFEN [IBUPROFEN] [Concomitant]
     Active Substance: IBUPROFEN
     Dosage: 10 DOSES, AS NEEDED
     Route: 048
     Dates: start: 20190717
  40. ARGAMATE [Concomitant]
     Active Substance: CALCIUM POLYSTYRENE SULFONATE
     Dosage: 25 GRAM, BID
     Route: 048
     Dates: start: 20190213
  41. MOHRUS L [Concomitant]
     Active Substance: KETOPROFEN
     Dosage: 40 MG/DAY, 17 DAY SUPPLY
     Route: 062
     Dates: start: 20190426
  42. LOXONIN [Concomitant]
     Active Substance: LOXOPROFEN SODIUM
     Indication: BACK PAIN
     Dosage: 60 MG, Q12H, 10 DAY SUPPLY
     Route: 048
     Dates: start: 20190227
  43. ZADITEN [Concomitant]
     Active Substance: KETOTIFEN FUMARATE
     Indication: RHINITIS ALLERGIC
     Dosage: SEVERAL TIMES, 1 BOTTLE
     Route: 045
     Dates: start: 20180316
  44. ZYLORIC [Concomitant]
     Active Substance: ALLOPURINOL
     Indication: HYPERURICAEMIA
     Dosage: 50 MG, EVERYDAY
     Route: 048
     Dates: start: 20180110, end: 20180417
  45. BUFFERIN COMBINATION [Concomitant]
     Active Substance: ASPIRIN\DIHYDROXYALUMINUM AMINOACETATE ANHYDROUS\MAGNESIUM CARBONATE
     Indication: THROMBOSIS PROPHYLAXIS
     Dosage: 81 MG, EVERYDAY
     Route: 048
     Dates: start: 20180110, end: 20180417
  46. NESP [Concomitant]
     Active Substance: DARBEPOETIN ALFA
     Indication: NEPHROGENIC ANAEMIA
     Dosage: 30 MICROGRAM, QWK
     Route: 042
     Dates: start: 20171201, end: 20180411
  47. NESP [Concomitant]
     Active Substance: DARBEPOETIN ALFA
     Dosage: 80 MICROGRAM, QWK
     Route: 042
     Dates: start: 20180817, end: 20190313
  48. BRUFEN [IBUPROFEN] [Concomitant]
     Active Substance: IBUPROFEN
     Dosage: 10 DOSES, AS NEEDED
     Route: 048
     Dates: start: 20190710
  49. ALLEGRA [Concomitant]
     Active Substance: FEXOFENADINE HYDROCHLORIDE
     Dosage: 60 MG, EVERYDAY
     Route: 048
     Dates: start: 20190213, end: 20190226
  50. ALOSENN [ACHILLEA MILLEFOLIUM;RUBIA TINCTORUM ROOT TINCTURE;SENNA ALEX [Concomitant]
     Active Substance: ACHILLEA MILLEFOLIUM\RUBIA TINCTURE\SENNA FRUIT EXTRACT\SENNA LEAF\TARAXACUM OFFICINALE
     Dosage: 1 DF, EVERYDAY
     Route: 048
     Dates: start: 20190327
  51. LOXONIN [Concomitant]
     Active Substance: LOXOPROFEN SODIUM
     Dosage: 60 MG, Q12H, 10 DAY SUPPLY
     Route: 048
     Dates: start: 20190227
  52. MYSLEE [Concomitant]
     Active Substance: ZOLPIDEM TARTRATE
     Dosage: 10 MG, EVERYDAY
     Route: 048
     Dates: start: 20190213
  53. VASOLAN [VERAPAMIL HYDROCHLORIDE] [Concomitant]
     Active Substance: VERAPAMIL HYDROCHLORIDE
     Indication: TACHYCARDIA
     Dosage: 40 MILLIGRAM, Q8H
     Route: 048
     Dates: start: 20180110, end: 20180417
  54. RIONA [Concomitant]
     Active Substance: FERRIC CITRATE ANHYDROUS
     Dosage: 250 MG, Q8H
     Route: 048
     Dates: start: 20190724
  55. MUCOSTA [Concomitant]
     Active Substance: REBAMIPIDE
     Dosage: 100 MG, 10 DOSES, AS NEEDED (WITH AT LEAST 6 HOURS OF INTERVALS BETWEEN DOSES, UP TO TWICE A DAY)
     Route: 048
     Dates: start: 20190419
  56. MUCOSTA [Concomitant]
     Active Substance: REBAMIPIDE
     Dosage: 100 MG, 10 DOSES, AS NEEDED (WITH AT LEAST 6 HOURS OF INTERVALS BETWEEN DOSES, UP TO TWICE A DAY)
     Route: 048
     Dates: start: 20190426
  57. NASONEX [Concomitant]
     Active Substance: MOMETASONE FUROATE
     Indication: RHINITIS ALLERGIC
     Dosage: UNK, EVERYDAY, 1 BOTTLE
     Route: 045
     Dates: start: 20190306
  58. PARSABIV [Suspect]
     Active Substance: ETELCALCETIDE HYDROCHLORIDE
     Dosage: 2.5 MILLIGRAM, 3 TIMES/WK
     Route: 010
     Dates: start: 20190220
  59. NESP [Concomitant]
     Active Substance: DARBEPOETIN ALFA
     Dosage: 120 MICROGRAM, QWK
     Route: 042
     Dates: start: 20190426
  60. ALOSENN [ACHILLEA MILLEFOLIUM;RUBIA TINCTORUM ROOT TINCTURE;SENNA ALEX [Concomitant]
     Active Substance: ACHILLEA MILLEFOLIUM\RUBIA TINCTURE\SENNA FRUIT EXTRACT\SENNA LEAF\TARAXACUM OFFICINALE
     Indication: CONSTIPATION
     Dosage: 0.5 GRAM, QD
     Route: 048
     Dates: start: 20180110, end: 20180417
  61. CALTAN [Concomitant]
     Active Substance: CALCIUM CARBONATE
     Dosage: 1000 MILLIGRAM, Q8H
     Route: 048
     Dates: start: 20190213
  62. CALTAN [Concomitant]
     Active Substance: CALCIUM CARBONATE
     Dosage: 1000 MG, Q8H
     Route: 048
     Dates: start: 20180110, end: 20180417
  63. MUCOSTA [Concomitant]
     Active Substance: REBAMIPIDE
     Indication: ABDOMINAL PAIN UPPER
     Dosage: 100 MILLIGRAM, Q12H
     Route: 048
     Dates: start: 20180110, end: 20180417
  64. NESP [Concomitant]
     Active Substance: DARBEPOETIN ALFA
     Dosage: 60 MICROGRAM, QWK
     Route: 042
     Dates: start: 20180706, end: 20180815
  65. ARGAMATE [Concomitant]
     Active Substance: CALCIUM POLYSTYRENE SULFONATE
     Indication: HYPERKALAEMIA
     Dosage: 25 GRAM, BID
     Route: 048
     Dates: start: 20180110, end: 20180417
  66. ALLEGRA [Concomitant]
     Active Substance: FEXOFENADINE HYDROCHLORIDE
     Indication: RHINITIS ALLERGIC
     Dosage: 60 MG/DAY, 7 DAY SUPPLY
     Route: 048
     Dates: start: 20180302
  67. ALLEGRA [Concomitant]
     Active Substance: FEXOFENADINE HYDROCHLORIDE
     Dosage: 60 MILLIGRAM, QD
     Route: 048
     Dates: start: 20180314, end: 20180417
  68. MOHRUS L [Concomitant]
     Active Substance: KETOPROFEN
     Dosage: 40 MG/DAY, 14 DAY SUPPLY
     Route: 062
     Dates: start: 20190301
  69. MOHRUS L [Concomitant]
     Active Substance: KETOPROFEN
     Dosage: 40 MG/DAY, 10 DAY SUPPLY
     Route: 062
     Dates: start: 20190313
  70. MOHRUS L [Concomitant]
     Active Substance: KETOPROFEN
     Dosage: 40 MG/DAY, 17 DAY SUPPLY
     Route: 062
     Dates: start: 20190524
  71. MOHRUS L [Concomitant]
     Active Substance: KETOPROFEN
     Dosage: 40 MG/DAY, 17 DAY SUPPLY
     Route: 062
     Dates: start: 20190624
  72. PATANOL [Concomitant]
     Active Substance: OLOPATADINE HYDROCHLORIDE
     Indication: CONJUNCTIVITIS ALLERGIC
     Dosage: 5 MILLILITER, TWO OR THREE TIMES/DAY
     Route: 047
     Dates: start: 20180302
  73. MYSLEE [Concomitant]
     Active Substance: ZOLPIDEM TARTRATE
     Indication: INSOMNIA
     Dosage: 10 MG, EVERYDAY
     Route: 048
     Dates: start: 20180110, end: 20180417
  74. CALTAN [Concomitant]
     Active Substance: CALCIUM CARBONATE
     Indication: HYPERPHOSPHATAEMIA
     Dosage: 1000 MILLIGRAM, Q8H
     Route: 048
     Dates: start: 20180110, end: 20180417

REACTIONS (1)
  - Endocarditis [Recovering/Resolving]

NARRATIVE: CASE EVENT DATE: 20180416
